FAERS Safety Report 4478170-9 (Version None)
Quarter: 2004Q4

REPORT INFORMATION
  Report Type: 
  Country: None (occurrence: None)
  Receive Date: 20041014
  Receipt Date: 20040929
  Transmission Date: 20050328
  Serious: No
  Sender: FDA-Public Use
  Company Number: 2004GB02338

PATIENT
  Age: 54 Year

DRUGS (1)
  1. GEFITINIB [Suspect]

REACTIONS (1)
  - NAIL INFECTION [None]
